FAERS Safety Report 8832366 (Version 1)
Quarter: 2012Q4

REPORT INFORMATION
  Report Type: 
  Country: US (occurrence: US)
  Receive Date: 20121009
  Receipt Date: 20121009
  Transmission Date: 20130627
  Serious: No
  Sender: FDA-Public Use
  Company Number: US-009507513-1209USA004910

PATIENT
  Sex: Female

DRUGS (2)
  1. NEXPLANON [Suspect]
     Indication: CONTRACEPTION
     Dosage: 68 mg, Once, 3 year implant
     Route: 059
     Dates: start: 201208, end: 201208
  2. NEXPLANON [Suspect]
     Dosage: 68 mg, Once, 3 year implant
     Route: 059
     Dates: start: 201208

REACTIONS (1)
  - Device difficult to use [Unknown]
